FAERS Safety Report 8691227 (Version 2)
Quarter: 2013Q2

REPORT INFORMATION
  Report Type: Report from Study
  Country: MX (occurrence: MX)
  Receive Date: 20120730
  Receipt Date: 20130510
  Transmission Date: 20140414
  Serious: Yes (Life-Threatening, Other)
  Sender: FDA-Public Use
  Company Number: PHHY2012MX064640

PATIENT
  Age: 59 Year
  Sex: Female

DRUGS (1)
  1. ACLASTA [Suspect]
     Indication: CALCIUM DEFICIENCY
     Dosage: 1 APPLICATION (5MG/100 ML) EACH YEAR
     Route: 042
     Dates: start: 201110

REACTIONS (7)
  - Feeling abnormal [Recovered/Resolved]
  - Type I hypersensitivity [Recovered/Resolved]
  - Hypotension [Recovered/Resolved]
  - Pyrexia [Recovered/Resolved]
  - Mouth ulceration [Recovered/Resolved]
  - Syncope [Recovered/Resolved]
  - Pain [Recovered/Resolved]
